FAERS Safety Report 7865694-7 (Version None)
Quarter: 2011Q4

REPORT INFORMATION
  Report Type: 
  Country: None (occurrence: None)
  Receive Date: 20111028
  Receipt Date: 20110208
  Transmission Date: 20120403
  Serious: No
  Sender: FDA-Public Use
  Company Number: US-GLAXOSMITHKLINE-A0912507A

PATIENT
  Age: 71 Year
  Sex: Male

DRUGS (8)
  1. METFORMIN HCL [Concomitant]
  2. PRAVASTATIN [Concomitant]
  3. CYMBALTA [Concomitant]
  4. OXYGEN [Concomitant]
  5. LOTREL [Concomitant]
  6. DOXAZOSIN MESYLATE [Concomitant]
  7. ADVAIR DISKUS 100/50 [Suspect]
     Indication: CHRONIC OBSTRUCTIVE PULMONARY DISEASE
     Dosage: 1PUFF TWICE PER DAY
     Route: 055
     Dates: start: 20110101
  8. SPIRIVA [Suspect]
     Dosage: 1PUFF PER DAY
     Route: 055
     Dates: start: 20110101

REACTIONS (2)
  - VISUAL IMPAIRMENT [None]
  - SENSITIVITY OF TEETH [None]
